FAERS Safety Report 16174191 (Version 1)
Quarter: 2019Q2

REPORT INFORMATION
  Report Type: Spontaneous
  Country: US (occurrence: US)
  Receive Date: 20190408
  Receipt Date: 20190408
  Transmission Date: 20190711
  Serious: Yes (Death)
  Sender: FDA-Public Use
  Company Number: None

PATIENT
  Age: 81 Year
  Sex: Male

DRUGS (9)
  1. TAMSULOSIN HCL 0.4 MG CAP [Concomitant]
     Active Substance: TAMSULOSIN HYDROCHLORIDE
  2. TRAZODONE 100 MG TAB [Concomitant]
  3. ALENDRONATE SODIUM 70 MG TAB [Concomitant]
  4. WARFARIN SODIUM 2.5 MG TAB [Concomitant]
  5. METHIMAZOLE 5 MG TAB [Concomitant]
  6. FUROSEMIDE. [Suspect]
     Active Substance: FUROSEMIDE
     Dosage: ?          OTHER FREQUENCY:MON, WED, AND FRI;?
     Route: 048
  7. LISINOPRIL 5 MG TAB [Concomitant]
  8. RANEXA [Suspect]
     Active Substance: RANOLAZINE
     Route: 048
  9. SOTALOL 120 MG TAB [Concomitant]

REACTIONS (1)
  - Death [None]

NARRATIVE: CASE EVENT DATE: 20190325
